FAERS Safety Report 10351491 (Version 1)
Quarter: 2014Q3

REPORT INFORMATION
  Report Type: Spontaneous
  Country: GB (occurrence: GB)
  Receive Date: 20140730
  Receipt Date: 20140730
  Transmission Date: 20150326
  Serious: Yes (Other)
  Sender: FDA-Public Use
  Company Number: GB-ROXANE LABORATORIES, INC.-2014-RO-01129RO

PATIENT
  Age: 39 Year
  Sex: Female

DRUGS (1)
  1. CITALOPRAM [Suspect]
     Active Substance: CITALOPRAM HYDROBROMIDE
     Indication: PRODUCT USED FOR UNKNOWN INDICATION
     Route: 065

REACTIONS (13)
  - Alcohol interaction [Unknown]
  - Overdose [Unknown]
  - Amnesia [Unknown]
  - Crying [Unknown]
  - Aggression [Unknown]
  - Job dissatisfaction [Unknown]
  - Affect lability [Unknown]
  - Nightmare [Unknown]
  - Somnambulism [Unknown]
  - Loss of libido [Unknown]
  - High risk sexual behaviour [Unknown]
  - Anger [Unknown]
  - Physical assault [Unknown]
